FAERS Safety Report 16183285 (Version 1)
Quarter: 2019Q2

REPORT INFORMATION
  Report Type: Report from Study
  Country: US (occurrence: US)
  Receive Date: 20190411
  Receipt Date: 20190411
  Transmission Date: 20190711
  Serious: Yes (Death, Hospitalization)
  Sender: FDA-Public Use
  Company Number: US-ROCHE-2040077

PATIENT
  Age: 65 Year
  Sex: Female
  Weight: 57.2 kg

DRUGS (3)
  1. BEVACIZUMAB. [Suspect]
     Active Substance: BEVACIZUMAB
     Indication: COLORECTAL CANCER METASTATIC
     Dosage: OVER 90 MINUTES?TOTAL DOSE ADMINISTERED THIS COURSE 413 MG
     Route: 042
     Dates: start: 20171114
  2. BLINDED ATEZOLIZUMAB [Suspect]
     Active Substance: ATEZOLIZUMAB
     Indication: COLORECTAL CANCER METASTATIC
     Dosage: OVER 60 MINUTES
     Route: 042
     Dates: start: 20171114
  3. CAPECITABINE. [Suspect]
     Active Substance: CAPECITABINE
     Indication: COLORECTAL CANCER METASTATIC
     Dosage: TOTAL DOSE ADMINISTERED IN THE COURSE 37,100 MG
     Route: 048
     Dates: start: 20171127

REACTIONS (2)
  - Dyspnoea [Unknown]
  - Death [Fatal]

NARRATIVE: CASE EVENT DATE: 20171205
